FAERS Safety Report 16315513 (Version 1)
Quarter: 2019Q2

REPORT INFORMATION
  Report Type: Spontaneous
  Country: US (occurrence: US)
  Receive Date: 20190515
  Receipt Date: 20190515
  Transmission Date: 20190711
  Serious: No
  Sender: FDA-Public Use
  Company Number: US-SA-2019SA125270

PATIENT
  Sex: Female

DRUGS (2)
  1. DUPIXENT [Suspect]
     Active Substance: DUPILUMAB
     Dosage: 300 MG, QOW
  2. DUPIXENT [Suspect]
     Active Substance: DUPILUMAB
     Indication: ECZEMA
     Dosage: UNK, 1X
     Dates: start: 20190330, end: 20190330

REACTIONS (5)
  - Pruritus [Unknown]
  - Insomnia [Unknown]
  - Abdominal distension [Unknown]
  - Weight increased [Unknown]
  - Rash erythematous [Unknown]

NARRATIVE: CASE EVENT DATE: 201904
